FAERS Safety Report 18211346 (Version 1)
Quarter: 2020Q3

REPORT INFORMATION
  Report Type: Spontaneous
  Country: CA (occurrence: CA)
  Receive Date: 20200831
  Receipt Date: 20200831
  Transmission Date: 20201103
  Serious: Yes (Other)
  Sender: FDA-Public Use
  Company Number: CA-NOVEN PHARMACEUTICALS, INC.-2020CA004848

PATIENT
  Sex: Female

DRUGS (2)
  1. ESTRADIOL/NORETHISTRONE ACETATE [Suspect]
     Active Substance: ESTRADIOL\NORETHINDRONE ACETATE
     Dosage: 1 DF, 3/WEEK
     Route: 065
  2. ESTRADIOL/NORETHISTRONE ACETATE [Suspect]
     Active Substance: ESTRADIOL\NORETHINDRONE ACETATE
     Indication: PRODUCT USED FOR UNKNOWN INDICATION
     Dosage: 1 DF, 2/WEEK
     Route: 065

REACTIONS (1)
  - Haemorrhage [Unknown]
